FAERS Safety Report 4507475-8 (Version None)
Quarter: 2004Q4

REPORT INFORMATION
  Report Type: 
  Country: None (occurrence: None)
  Receive Date: 20041118
  Receipt Date: 20041105
  Transmission Date: 20050328
  Serious: Yes (Life-Threatening, Hospitalization, Other)
  Sender: FDA-Public Use
  Company Number: 2003116226

PATIENT
  Age: 27 Year
  Sex: Male
  Weight: 75 kg

DRUGS (3)
  1. SULPERAZON (CEFOPERAZONE, SULBACTAM) [Suspect]
     Indication: INFECTION PROPHYLAXIS
     Dosage: 1 GRAM (ONCE), INTRAVENOUS
     Route: 042
     Dates: start: 20031015, end: 20031015
  2. TETRACAIN HYDROCHLORIDE 9TETRACAINE HYDROCHLORIDE) [Suspect]
     Indication: SPINAL ANAESTHESIA
     Dosage: 12 MG (ONCE), INTRATHECAL
     Route: 037
     Dates: start: 20031015, end: 20031015
  3. LIDOCAINE HYDROCHLORIDE [Suspect]
     Indication: ANALGESIC EFFECT
     Dosage: 3 ML (ONCE), SUBCTUANEOUS
     Route: 058
     Dates: start: 20031015, end: 20031015

REACTIONS (11)
  - AMNESIA [None]
  - ANAPHYLACTIC SHOCK [None]
  - BLOOD ALKALINE PHOSPHATASE INCREASED [None]
  - CARDIO-RESPIRATORY ARREST [None]
  - DEPRESSED LEVEL OF CONSCIOUSNESS [None]
  - DRUG INEFFECTIVE [None]
  - HEART RATE DECREASED [None]
  - HYPOXIA [None]
  - LYMPHOCYTE STIMULATION TEST POSITIVE [None]
  - STATUS ASTHMATICUS [None]
  - VENTRICULAR TACHYCARDIA [None]
